FAERS Safety Report 4934517-8 (Version None)
Quarter: 2006Q1

REPORT INFORMATION
  Report Type: 
  Country: None (occurrence: None)
  Receive Date: 20060307
  Receipt Date: 20050922
  Transmission Date: 20060701
  Serious: No
  Sender: FDA-Public Use
  Company Number: US-BRISTOL-MYERS SQUIBB COMPANY-13125901

PATIENT
  Age: 35 Year
  Sex: Female
  Weight: 52 kg

DRUGS (3)
  1. MONISTAT-1 VAG OINT 6.5% [Suspect]
     Indication: VULVOVAGINAL MYCOTIC INFECTION
     Route: 067
     Dates: start: 20050921, end: 20050921
  2. VICODIN [Concomitant]
  3. AMBIEN [Concomitant]

REACTIONS (3)
  - GENITAL PRURITUS FEMALE [None]
  - VAGINAL SWELLING [None]
  - VULVOVAGINAL DISCOMFORT [None]
